FAERS Safety Report 14907178 (Version 1)
Quarter: 2018Q2

REPORT INFORMATION
  Report Type: Report from Study
  Country: US (occurrence: US)
  Receive Date: 20180517
  Receipt Date: 20180517
  Transmission Date: 20180711
  Serious: Yes (Other)
  Sender: FDA-Public Use
  Company Number: US-INGENUS PHARMACEUTICALS NJ, LLC-ING201805-000445

PATIENT
  Age: 63 Year
  Sex: Male

DRUGS (6)
  1. POTASSIUM [Suspect]
     Active Substance: POTASSIUM
     Indication: HEADACHE
     Dosage: DAILY USE OF POWDER PACKET USE  FOR 6 MONTHS
  2. CARISOPRODOL, ASPIRIN AND CODEINE PHOSPHATE [Suspect]
     Active Substance: ASPIRIN\CARISOPRODOL\CODEINE PHOSPHATE
     Indication: HEADACHE
     Dosage: DAILY USE OF POWDER PACKET USE  FOR 6 MONTHS
  3. CARISOPRODOL, ASPIRIN AND CODEINE PHOSPHATE [Suspect]
     Active Substance: ASPIRIN\CARISOPRODOL\CODEINE PHOSPHATE
     Dosage: DAILY USE OF POWDER PACKET USE  FOR 6 MONTHS
  4. ACETAMINOPHEN. [Suspect]
     Active Substance: ACETAMINOPHEN
     Indication: HEADACHE
     Dosage: DAILY USE OF POWDER PACKET USE  FOR 6 MONTHS
  5. CAFFEINE. [Suspect]
     Active Substance: CAFFEINE
     Indication: HEADACHE
     Dosage: DAILY USE OF POWDER PACKET USE  FOR 6 MONTHS
  6. CAFFEINE. [Suspect]
     Active Substance: CAFFEINE
     Dosage: DAILY USE OF POWDER PACKET USE  FOR 6 MONTHS

REACTIONS (1)
  - Cerebral haemorrhage [Unknown]
